FAERS Safety Report 15878896 (Version 1)
Quarter: 2019Q1

REPORT INFORMATION
  Report Type: Spontaneous
  Country: US (occurrence: US)
  Receive Date: 20190125
  Receipt Date: 20190125
  Transmission Date: 20190417
  Serious: Yes (Hospitalization)
  Sender: FDA-Public Use
  Company Number: None

PATIENT
  Age: 76 Year
  Sex: Male
  Weight: 67.5 kg

DRUGS (6)
  1. LIPITOR [Suspect]
     Active Substance: ATORVASTATIN CALCIUM
     Indication: BLOOD CHOLESTEROL INCREASED
     Dosage: ?          QUANTITY:1 CAPSULE(S);?
     Route: 048
     Dates: start: 20090125
  2. VITAMIN D [Concomitant]
     Active Substance: CHOLECALCIFEROL
  3. METFORMIN [Concomitant]
     Active Substance: METFORMIN HYDROCHLORIDE
  4. DIOVAN [Concomitant]
     Active Substance: VALSARTAN
  5. POTASSIUM [Concomitant]
     Active Substance: POTASSIUM
  6. PRADAXA [Concomitant]
     Active Substance: DABIGATRAN ETEXILATE MESYLATE

REACTIONS (1)
  - Feeling abnormal [None]

NARRATIVE: CASE EVENT DATE: 20190125
